FAERS Safety Report 19913770 (Version 1)
Quarter: 2021Q4

REPORT INFORMATION
  Report Type: Spontaneous
  Country: JP (occurrence: JP)
  Receive Date: 20211004
  Receipt Date: 20211004
  Transmission Date: 20220303
  Serious: Yes (Life-Threatening, Hospitalization)
  Sender: FDA-Public Use
  Company Number: JP-BAYER-2021-198323

PATIENT
  Age: 75 Year
  Sex: Female
  Weight: 66.7 kg

DRUGS (16)
  1. IOPROMIDE [Suspect]
     Active Substance: IOPROMIDE
     Indication: Colon cancer
     Dosage: 92 ML, ONCE
     Route: 042
     Dates: start: 20210823, end: 20210823
  2. IOPROMIDE [Suspect]
     Active Substance: IOPROMIDE
     Indication: Computerised tomogram intestine
  3. ALENDRONATE [Concomitant]
     Active Substance: ALENDRONATE SODIUM
  4. ELDECALCITOL [Concomitant]
     Active Substance: ELDECALCITOL
  5. RABEPRAZOLE SODIUM [Concomitant]
     Active Substance: RABEPRAZOLE SODIUM
  6. AMLODIPINE BESYLATE\IRBESARTAN [Concomitant]
     Active Substance: AMLODIPINE BESYLATE\IRBESARTAN
  7. PITAVASTATIN CALCIUM [Concomitant]
     Active Substance: PITAVASTATIN CALCIUM
  8. CANDESARTAN [Concomitant]
     Active Substance: CANDESARTAN
  9. ETIZOLAM [Concomitant]
     Active Substance: ETIZOLAM
  10. BETAHISTINE MESILATE [Concomitant]
     Active Substance: BETAHISTINE MESILATE
  11. LOXOPROFEN SODIUM [Concomitant]
     Active Substance: LOXOPROFEN SODIUM
  12. REBAMIPIDE [Concomitant]
     Active Substance: REBAMIPIDE
  13. RABEPRAZOLE SODIUM [Concomitant]
     Active Substance: RABEPRAZOLE SODIUM
     Indication: Gastrointestinal disorder prophylaxis
     Dosage: UNK
  14. AMLODIPINE BESYLATE\IRBESARTAN [Concomitant]
     Active Substance: AMLODIPINE BESYLATE\IRBESARTAN
     Indication: Blood pressure decreased
     Dosage: UNK
  15. LIVALO [Concomitant]
     Active Substance: PITAVASTATIN CALCIUM
     Indication: Blood cholesterol decreased
     Dosage: UNK
  16. CANDESARTAN CILEXETIL [Concomitant]
     Active Substance: CANDESARTAN CILEXETIL
     Dosage: UNK

REACTIONS (18)
  - Anaphylactic shock [Recovered/Resolved]
  - Electrocardiogram ST segment elevation [Recovered/Resolved]
  - Arteriospasm coronary [Recovering/Resolving]
  - Kounis syndrome [Recovered/Resolved]
  - Pyrexia [Recovering/Resolving]
  - Pulmonary imaging procedure abnormal [Recovering/Resolving]
  - Cardiac arrest [Recovered/Resolved]
  - Erythema [Recovered/Resolved]
  - Oropharyngeal discomfort [Recovered/Resolved]
  - Loss of consciousness [Recovered/Resolved]
  - Carotid pulse abnormal [Recovered/Resolved]
  - Discomfort [Recovered/Resolved]
  - Pulseless electrical activity [Recovered/Resolved]
  - Hyperhidrosis [Recovered/Resolved]
  - Rash [Recovered/Resolved]
  - Dizziness [Recovered/Resolved]
  - Metabolic acidosis [Recovered/Resolved]
  - Cold sweat [Recovered/Resolved]

NARRATIVE: CASE EVENT DATE: 20210823
